FAERS Safety Report 14710938 (Version 2)
Quarter: 2018Q2

REPORT INFORMATION
  Report Type: Spontaneous
  Country: KR (occurrence: KR)
  Receive Date: 20180403
  Receipt Date: 20180420
  Transmission Date: 20180711
  Serious: Yes (Hospitalization, Other)
  Sender: FDA-Public Use
  Company Number: KR-JNJFOC-20180400337

PATIENT
  Age: 16 Year
  Sex: Female

DRUGS (2)
  1. REMICADE [Suspect]
     Active Substance: INFLIXIMAB
     Indication: CROHN^S DISEASE
     Route: 042
  2. REMICADE [Suspect]
     Active Substance: INFLIXIMAB
     Indication: CROHN^S DISEASE
     Route: 042

REACTIONS (8)
  - Disseminated tuberculosis [Unknown]
  - Intestinal ulcer [Unknown]
  - Product use issue [Unknown]
  - Off label use [Unknown]
  - Bicytopenia [Unknown]
  - Diarrhoea [Unknown]
  - Faecal calprotectin [Unknown]
  - Abdominal pain [Unknown]
